FAERS Safety Report 21929730 (Version 1)
Quarter: 2023Q1

REPORT INFORMATION
  Report Type: Other
  Country: None (occurrence: IN)
  Receive Date: 20230131
  Receipt Date: 20230131
  Transmission Date: 20230417
  Serious: Yes (Life-Threatening, Hospitalization, Other)
  Sender: FDA-Public Use
  Company Number: IN-Appco Pharma LLC-2137280

PATIENT
  Age: 20 Year
  Sex: Female

DRUGS (4)
  1. LABETALOL HYDROCHLORIDE [Suspect]
     Active Substance: LABETALOL HYDROCHLORIDE
     Indication: Hypertension
     Route: 065
  2. TELMISARTAN [Suspect]
     Active Substance: TELMISARTAN
     Route: 065
  3. METHYLDOPA [Suspect]
     Active Substance: METHYLDOPA
     Route: 065
  4. NIFEDIPINE [Suspect]
     Active Substance: NIFEDIPINE
     Route: 065

REACTIONS (3)
  - Abortion induced [Unknown]
  - Maternal exposure during pregnancy [Unknown]
  - Drug ineffective [Unknown]
